FAERS Safety Report 8404738-0 (Version None)
Quarter: 2012Q2

REPORT INFORMATION
  Report Type: 
  Country: None (occurrence: None)
  Receive Date: 20120601
  Receipt Date: 20120531
  Transmission Date: 20120825
  Serious: No
  Sender: FDA-Public Use
  Company Number: US-PFIZER INC-2012131981

PATIENT
  Sex: Male

DRUGS (2)
  1. VIAGRA [Suspect]
     Dosage: UNK
  2. ALCOHOL [Interacting]

REACTIONS (2)
  - ERECTION INCREASED [None]
  - DRUG INTERACTION [None]
